FAERS Safety Report 9637904 (Version 1)
Quarter: 2013Q4

REPORT INFORMATION
  Report Type: Spontaneous
  Country: NZ (occurrence: NZ)
  Receive Date: 20131022
  Receipt Date: 20131022
  Transmission Date: 20140711
  Serious: Yes (Other)
  Sender: FDA-Public Use
  Company Number: NZ-ELI_LILLY_AND_COMPANY-NZ201310002623

PATIENT
  Age: 64 Year
  Sex: Male

DRUGS (7)
  1. ZYPREXA RELPREVV [Suspect]
     Dosage: 210 MG, 2/M
     Dates: start: 2012
  2. WARFARIN [Concomitant]
     Dosage: 4 MG, QD
  3. MAXOL [Concomitant]
     Dosage: UNK, BID
  4. THIAMINE [Concomitant]
     Dosage: 100 MG, UNK
  5. DIGOXIN [Concomitant]
     Dosage: 0.125 UNK, UNK
  6. CILAZAPRIL [Concomitant]
     Dosage: 1.25 MG, UNK
  7. DILTIAZEM [Concomitant]
     Dosage: 240 MG, EACH EVENING

REACTIONS (7)
  - Circulatory collapse [Unknown]
  - Eye movement disorder [Unknown]
  - Fall [Unknown]
  - Head injury [Unknown]
  - Confusional state [Unknown]
  - Disorientation [Unknown]
  - Influenza like illness [Unknown]
